FAERS Safety Report 11609107 (Version 1)
Quarter: 2015Q4

REPORT INFORMATION
  Report Type: Report from Study
  Country: DE (occurrence: DE)
  Receive Date: 20151007
  Receipt Date: 20151007
  Transmission Date: 20160304
  Serious: Yes (Hospitalization)
  Sender: FDA-Public Use
  Company Number: DE-B.I. PHARMACEUTICALS,INC./RIDGEFIELD-2015-BI-53955BI

PATIENT
  Age: 77 Year
  Sex: Male

DRUGS (4)
  1. DICLOFENAC [Concomitant]
     Active Substance: DICLOFENAC
     Indication: SPINAL OSTEOARTHRITIS
     Dosage: DAILY DOSE: PRN
     Route: 048
     Dates: start: 201012
  2. CANDESARTAN [Concomitant]
     Active Substance: CANDESARTAN
     Indication: CARDIAC FAILURE
     Dosage: 16 MG
     Route: 048
     Dates: start: 20150518
  3. BIBF 1120 [Suspect]
     Active Substance: NINTEDANIB
     Indication: IDIOPATHIC PULMONARY FIBROSIS
     Dosage: 200 MG
     Route: 048
     Dates: start: 20121212, end: 20150929
  4. HCT-BETA [Concomitant]
     Indication: CARDIAC FAILURE
     Dosage: 12.5 MG
     Route: 048
     Dates: start: 201012

REACTIONS (1)
  - Ileus [Not Recovered/Not Resolved]

NARRATIVE: CASE EVENT DATE: 20150930
